FAERS Safety Report 9694641 (Version 1)
Quarter: 2013Q4

REPORT INFORMATION
  Report Type: Other
  Country: GB (occurrence: GB)
  Receive Date: 20131119
  Receipt Date: 20131119
  Transmission Date: 20140711
  Serious: Yes (Hospitalization)
  Sender: FDA-Public Use
  Company Number: GB-SUN PHARMACEUTICAL INDUSTRIES LTD-2013SUN05001

PATIENT
  Age: 65 Year
  Sex: Female
  Weight: 101.6 kg

DRUGS (7)
  1. CARBOPLATIN 10 MG/ML CONCENTRATE FOR SOLUTION FOR INFUSION [Suspect]
     Indication: BREAST CANCER
     Dosage: 810 MG, EVERY 3 WEEKS
     Route: 042
  2. DOCETAXEL [Suspect]
     Indication: BREAST CANCER
     Dosage: 106 MG, EVERY 3 WEEKS
     Route: 042
  3. HERCEPTIN [Suspect]
     Indication: BREAST CANCER
     Dosage: 810 MG, EVERY 3 WEEKS
     Route: 042
     Dates: start: 20120601
  4. ASPIRIN [Concomitant]
     Dosage: UNK
     Route: 048
     Dates: start: 2002
  5. LEVOTHYROXINE [Concomitant]
     Dosage: UNK
     Route: 048
     Dates: start: 2007
  6. LISINOPRIL [Concomitant]
     Dosage: UNK
     Route: 048
     Dates: start: 2002
  7. SIMVASTATIN [Concomitant]
     Dosage: UNK
     Route: 048
     Dates: start: 2004

REACTIONS (1)
  - Gastroenteritis [Recovered/Resolved]
